FAERS Safety Report 13122568 (Version 1)
Quarter: 2017Q1

REPORT INFORMATION
  Report Type: Spontaneous
  Country: FR (occurrence: FR)
  Receive Date: 20170117
  Receipt Date: 20170117
  Transmission Date: 20170428
  Serious: Yes (Death)
  Sender: FDA-Public Use
  Company Number: FR-SA-2017SA005179

PATIENT
  Sex: Female

DRUGS (14)
  1. ROVAMYCINE [Concomitant]
     Active Substance: SPIRAMYCIN
     Dosage: 1.5 MU*3/DAY ;  LYOPHILISATE FOR PARENTERAL USAGE DOSE:1.5 MILLIUNIT(S)
     Route: 042
     Dates: start: 20161107, end: 20161109
  2. TAZOCILLINE [Concomitant]
     Active Substance: PIPERACILLIN SODIUM\TAZOBACTAM SODIUM
     Route: 042
     Dates: start: 20161117, end: 20161117
  3. MERONEM [Concomitant]
     Active Substance: MEROPENEM
     Route: 042
     Dates: start: 20161117, end: 20161119
  4. BISOPROLOL FUMARATE. [Suspect]
     Active Substance: BISOPROLOL FUMARATE
     Indication: ATRIAL FIBRILLATION
     Route: 048
     Dates: start: 20161110, end: 20161117
  5. CORTANCYL [Suspect]
     Active Substance: PREDNISONE
     Indication: DYSPNOEA
     Route: 048
     Dates: start: 20161111
  6. ROCEPHINE [Suspect]
     Active Substance: CEFTRIAXONE SODIUM
     Indication: LUNG DISORDER
     Route: 042
     Dates: start: 20161107, end: 20161117
  7. ETHAMBUTOL [Concomitant]
     Active Substance: ETHAMBUTOL HYDROCHLORIDE
     Route: 042
     Dates: start: 20161109, end: 20161109
  8. AUGMENTIN [Concomitant]
     Active Substance: AMOXICILLIN\CLAVULANATE POTASSIUM
  9. METHYLPREDNISOLONE. [Suspect]
     Active Substance: METHYLPREDNISOLONE
     Indication: DYSPNOEA
     Route: 042
     Dates: start: 20161110, end: 20161110
  10. CORTANCYL [Suspect]
     Active Substance: PREDNISONE
     Indication: DYSPNOEA
     Route: 048
     Dates: start: 201611
  11. CORTANCYL [Suspect]
     Active Substance: PREDNISONE
     Indication: DYSPNOEA
     Route: 048
     Dates: end: 20161116
  12. RIFATER [Suspect]
     Active Substance: ISONIAZID\PYRAZINAMIDE\RIFAMPIN
     Indication: PULMONARY TUBERCULOSIS
     Route: 048
     Dates: start: 20161109, end: 20161117
  13. CIFLOX [Concomitant]
     Active Substance: CIPROFLOXACIN
  14. AMIKACIN [Concomitant]
     Active Substance: AMIKACIN
     Dates: start: 20161117, end: 20161119

REACTIONS (2)
  - Renal failure [Fatal]
  - Hepatocellular injury [Fatal]

NARRATIVE: CASE EVENT DATE: 20161110
